FAERS Safety Report 9797712 (Version 3)
Quarter: 2014Q1

REPORT INFORMATION
  Report Type: Spontaneous
  Country: US (occurrence: US)
  Receive Date: 20140106
  Receipt Date: 20140121
  Transmission Date: 20141002
  Serious: No
  Sender: FDA-Public Use
  Company Number: US-PFIZER INC-2014001888

PATIENT
  Age: 44 Year
  Sex: Female
  Weight: 65.76 kg

DRUGS (2)
  1. EFFEXOR XR [Suspect]
     Indication: DEPRESSION
     Dosage: 375 MG, DAILY
     Dates: start: 2006
  2. DESVENLAFAXINE [Suspect]
     Indication: DEPRESSION
     Dosage: UNK

REACTIONS (4)
  - Drug ineffective [Unknown]
  - Withdrawal syndrome [Unknown]
  - Nausea [Unknown]
  - Depression [Unknown]
